FAERS Safety Report 7052788-1 (Version None)
Quarter: 2010Q4

REPORT INFORMATION
  Report Type: 
  Country: None (occurrence: None)
  Receive Date: 20101019
  Receipt Date: 20100722
  Transmission Date: 20110411
  Serious: No
  Sender: FDA-Public Use
  Company Number: US-MYLANLABS-2010S1013414

PATIENT
  Age: 53 Year
  Sex: Female
  Weight: 68.04 kg

DRUGS (2)
  1. LIOTHYRONINE SODIUM [Suspect]
     Indication: HYPOTHYROIDISM
     Route: 048
     Dates: start: 20100601
  2. LIOTHYRONINE SODIUM [Suspect]
     Route: 048
     Dates: end: 20100715

REACTIONS (2)
  - DRUG EFFECT INCREASED [None]
  - FEELING JITTERY [None]
